FAERS Safety Report 7418383-7 (Version None)
Quarter: 2011Q2

REPORT INFORMATION
  Report Type: 
  Country: None (occurrence: None)
  Receive Date: 20110415
  Receipt Date: 20110408
  Transmission Date: 20111010
  Serious: Yes (Hospitalization)
  Sender: FDA-Public Use
  Company Number: B0713424A

PATIENT
  Sex: Male

DRUGS (5)
  1. EUTIROX [Concomitant]
     Route: 065
  2. COUMADIN [Concomitant]
     Route: 065
  3. LANOXIN [Suspect]
     Indication: ATRIAL FIBRILLATION
     Dosage: .125MG PER DAY
     Route: 048
     Dates: start: 20090901, end: 20110406
  4. TENORMIN [Suspect]
     Indication: ATRIAL FIBRILLATION
     Dosage: 200MG PER DAY
     Route: 048
     Dates: start: 20090901, end: 20110406
  5. ALMARYTM [Suspect]
     Indication: ATRIAL FIBRILLATION
     Dosage: 200MG PER DAY
     Route: 048
     Dates: start: 20090901, end: 20110406

REACTIONS (5)
  - SINUS BRADYCARDIA [None]
  - LOSS OF CONSCIOUSNESS [None]
  - ATRIOVENTRICULAR BLOCK FIRST DEGREE [None]
  - SYNCOPE [None]
  - FACE INJURY [None]
